FAERS Safety Report 15178861 (Version 7)
Quarter: 2020Q2

REPORT INFORMATION
  Report Type: Spontaneous
  Country: DE (occurrence: DE)
  Receive Date: 20180722
  Receipt Date: 20200527
  Transmission Date: 20200713
  Serious: Yes (Death, Life-Threatening, Hospitalization)
  Sender: FDA-Public Use
  Company Number: PHHY2016DE187072

PATIENT
  Age: 50 Year
  Sex: Female
  Weight: 66 kg

DRUGS (14)
  1. PERTUZUMAB. [Suspect]
     Active Substance: PERTUZUMAB
     Indication: HER2 POSITIVE BREAST CANCER
     Dosage: 420 MG (MOST RECENT DOSE ON 05 JUL 2017)
     Route: 042
     Dates: start: 20161108
  2. KEPPRA [Concomitant]
     Active Substance: LEVETIRACETAM
     Indication: EPILEPSY
     Dosage: 1500 MG, QD (LAST DOSE ON 06/JAN/2017, 1 PRO TAG / PER DAY)
     Route: 048
     Dates: start: 20060630
  3. ASPIRIN. [Concomitant]
     Active Substance: ASPIRIN
     Indication: CEREBROVASCULAR ACCIDENT
     Dosage: 100 MG
     Route: 065
  4. CLOPIDOGREL [Concomitant]
     Active Substance: CLOPIDOGREL BISULFATE
     Indication: PRODUCT USED FOR UNKNOWN INDICATION
     Dosage: UNK
     Route: 065
     Dates: start: 20170621
  5. TRASTUZUMAB. [Suspect]
     Active Substance: TRASTUZUMAB
     Indication: BREAST CANCER
     Dosage: 6 MG/KG (6 MG/KG, UNK (EVERY 21 DAYS)(MOST RECENT DOSE ON 05 JUL 2017))
     Route: 042
     Dates: start: 20160108
  6. ATORVASTATIN [Concomitant]
     Active Substance: ATORVASTATIN
     Indication: HYPERCHOLESTEROLAEMIA
     Dosage: 20 MG, QD (1 PRO TAG / PER DAY)
     Route: 048
  7. ZOMETA [Suspect]
     Active Substance: ZOLEDRONIC ACID
     Indication: PRODUCT USED FOR UNKNOWN INDICATION
     Dosage: 4 MG, 28D (MOST RECENT DOSE ON 19 JUL 2017)
     Route: 065
     Dates: start: 20170302
  8. DOCETAXEL. [Suspect]
     Active Substance: DOCETAXEL
     Indication: HER2 POSITIVE BREAST CANCER
     Dosage: 1 OT
     Route: 042
     Dates: start: 20161108
  9. PANTOPRAZOL [Concomitant]
     Active Substance: PANTOPRAZOLE SODIUM
     Indication: PRODUCT USED FOR UNKNOWN INDICATION
     Dosage: UNK
     Route: 065
     Dates: start: 20170621
  10. PERTUZUMAB. [Suspect]
     Active Substance: PERTUZUMAB
     Indication: BREAST CANCER
  11. TRASTUZUMAB. [Suspect]
     Active Substance: TRASTUZUMAB
     Indication: HER2 POSITIVE BREAST CANCER
     Dosage: 6 MG/KG (MOST RECENT DOSE ON 05 JUL 2017)
     Route: 041
     Dates: start: 20140108
  12. LETROZOLE. [Suspect]
     Active Substance: LETROZOLE
     Indication: HER2 POSITIVE BREAST CANCER
     Dosage: 25 MG (2 , 5 MG. LAST DOSE PRIRO TO SAE ON 18-AUG-2017)
     Route: 065
     Dates: start: 201405
  13. LETROZOLE. [Suspect]
     Active Substance: LETROZOLE
     Dosage: 2.5 MG
     Route: 065
     Dates: end: 20170818
  14. TRASTUZUMAB. [Suspect]
     Active Substance: TRASTUZUMAB
     Dosage: 6 MG/KG
     Route: 042
     Dates: start: 20161108

REACTIONS (13)
  - Neutropenia [Recovered/Resolved]
  - Vertigo [Recovered/Resolved]
  - Mucosal inflammation [Recovered/Resolved]
  - Dysgeusia [Recovered/Resolved]
  - Death [Fatal]
  - Disease progression [Fatal]
  - Cough [Recovered/Resolved]
  - Febrile neutropenia [Not Recovered/Not Resolved]
  - Dysuria [Not Recovered/Not Resolved]
  - Diarrhoea [Recovered/Resolved]
  - Fatigue [Recovered/Resolved]
  - Stomatitis [Not Recovered/Not Resolved]
  - Epistaxis [Recovered/Resolved]

NARRATIVE: CASE EVENT DATE: 20161115
